FAERS Safety Report 8017638-5 (Version None)
Quarter: 2011Q4

REPORT INFORMATION
  Report Type: 
  Country: None (occurrence: None)
  Receive Date: 20111229
  Receipt Date: 20111229
  Transmission Date: 20120403
  Serious: Yes (Death)
  Sender: FDA-Public Use
  Company Number: None

PATIENT
  Sex: Male

DRUGS (6)
  1. TORSAMIDE [Concomitant]
  2. POT CL [Concomitant]
  3. XELODA [Suspect]
     Dates: start: 20110407, end: 20111214
  4. METOPROLOL SUCCINATE [Concomitant]
  5. TAMSULOSIN HCL [Concomitant]
  6. LISINOPRIL [Concomitant]

REACTIONS (1)
  - DEATH [None]
